FAERS Safety Report 6577932-1 (Version None)
Quarter: 2010Q1

REPORT INFORMATION
  Report Type: 
  Country: None (occurrence: None)
  Receive Date: 20100211
  Receipt Date: 20100204
  Transmission Date: 20100710
  Serious: Yes (Hospitalization)
  Sender: FDA-Public Use
  Company Number: US-SP-2009-00478

PATIENT
  Age: 65 Year
  Sex: Male
  Weight: 113 kg

DRUGS (5)
  1. THERACYS [Suspect]
     Indication: BLADDER CANCER
     Route: 043
     Dates: start: 20080815, end: 20090130
  2. LOPRESSOR [Concomitant]
  3. SIMVASTATIN [Concomitant]
  4. SANCTURA [Concomitant]
     Dates: start: 20090101
  5. TOPROL-XL [Concomitant]

REACTIONS (14)
  - ABDOMINAL PAIN LOWER [None]
  - CELLULITIS [None]
  - CHILLS [None]
  - CYSTITIS NONINFECTIVE [None]
  - ERYTHEMA [None]
  - HAEMATURIA [None]
  - LOCALISED INFECTION [None]
  - MICTURITION URGENCY [None]
  - NOCTURIA [None]
  - OEDEMA PERIPHERAL [None]
  - PAIN IN EXTREMITY [None]
  - POLLAKIURIA [None]
  - SKIN WARM [None]
  - UPPER RESPIRATORY TRACT INFECTION [None]
